FAERS Safety Report 8924319 (Version 2)
Quarter: 2012Q4

REPORT INFORMATION
  Report Type: 
  Country: JP (occurrence: JP)
  Receive Date: 20121126
  Receipt Date: 20121212
  Transmission Date: 20130627
  Serious: Yes (Hospitalization)
  Sender: FDA-Public Use
  Company Number: JP-GLAXOSMITHKLINE-B0846056A

PATIENT
  Age: 1 Year
  Sex: Male

DRUGS (7)
  1. FLUTIDE [Suspect]
     Indication: ASTHMA
     Dosage: 50MCG Twice per day
     Route: 055
     Dates: start: 20120617, end: 20120821
  2. SERETIDE [Suspect]
     Indication: ASTHMA
     Dosage: 100MCG Twice per day
     Route: 055
     Dates: start: 20120613, end: 2012
  3. SERETIDE [Suspect]
     Indication: ASTHMA
     Dosage: 50MCG Twice per day
     Route: 055
     Dates: start: 2012, end: 20120903
  4. SERETIDE [Suspect]
     Indication: ASTHMA
     Dosage: 100MCG Twice per day
     Route: 055
     Dates: start: 20120904, end: 20120905
  5. THEODUR [Concomitant]
     Indication: ASTHMA
     Route: 048
  6. ONON [Concomitant]
     Indication: ASTHMA
     Dosage: .35G Twice per day
     Route: 048
  7. MUCODYNE [Concomitant]
     Indication: ASTHMA
     Dosage: .2G Three times per day
     Route: 048

REACTIONS (10)
  - Hypoglycaemia [Recovered/Resolved]
  - Depressed level of consciousness [Unknown]
  - Bradyphrenia [Unknown]
  - Therapeutic response decreased [Unknown]
  - Nasopharyngitis [Unknown]
  - Asthma [Unknown]
  - Blood sodium decreased [Unknown]
  - Aspartate aminotransferase increased [Unknown]
  - Blood lactate dehydrogenase increased [Unknown]
  - Urine ketone body present [Unknown]
